FAERS Safety Report 14686951 (Version 1)
Quarter: 2018Q1

REPORT INFORMATION
  Report Type: Spontaneous
  Country: US (occurrence: US)
  Receive Date: 20180327
  Receipt Date: 20180327
  Transmission Date: 20180509
  Serious: No
  Sender: FDA-Public Use
  Company Number: US-MYLANLABS-2018M1014127

PATIENT
  Age: 75 Year
  Sex: Female
  Weight: 49 kg

DRUGS (9)
  1. ALDACTONE [Concomitant]
     Active Substance: SPIRONOLACTONE
     Indication: PRODUCT USED FOR UNKNOWN INDICATION
  2. CLONIDINE TRANSDERMAL SYSTEM [Suspect]
     Active Substance: CLONIDINE
     Indication: HYPERTENSION
     Dosage: 0.3 UNK, QD
     Route: 062
     Dates: end: 20180223
  3. GABAPENTIN. [Suspect]
     Active Substance: GABAPENTIN
     Indication: BLOOD PRESSURE SYSTOLIC INCREASED
     Dosage: 300 MG, QD
     Route: 048
     Dates: start: 20180206
  4. CLONIDINE TRANSDERMAL SYSTEM [Suspect]
     Active Substance: CLONIDINE
     Dosage: 0.3 UNK, UNK
     Route: 062
     Dates: start: 20180214
  5. CLONIDINE TRANSDERMAL SYSTEM [Suspect]
     Active Substance: CLONIDINE
     Dosage: 0.3 UNK, UNK
     Route: 062
     Dates: start: 20180207
  6. AMLODIPINE [Concomitant]
     Active Substance: AMLODIPINE BESYLATE
     Indication: PRODUCT USED FOR UNKNOWN INDICATION
  7. BYSTOLIC [Concomitant]
     Active Substance: NEBIVOLOL HYDROCHLORIDE
     Indication: PRODUCT USED FOR UNKNOWN INDICATION
  8. CLONIDINE TRANSDERMAL SYSTEM [Suspect]
     Active Substance: CLONIDINE
     Dosage: 0.3 UNK, UNK
     Route: 062
     Dates: start: 20180221
  9. CLONIDINE                          /00171102/ [Concomitant]
     Active Substance: CLONIDINE
     Indication: BLOOD PRESSURE SYSTOLIC INCREASED

REACTIONS (4)
  - Application site rash [Recovering/Resolving]
  - Blood pressure fluctuation [Not Recovered/Not Resolved]
  - Application site acne [Recovering/Resolving]
  - Application site pruritus [Not Recovered/Not Resolved]

NARRATIVE: CASE EVENT DATE: 20180223
